FAERS Safety Report 21969298 (Version 2)
Quarter: 2023Q1

REPORT INFORMATION
  Report Type: Spontaneous
  Country: PT (occurrence: PT)
  Receive Date: 20230208
  Receipt Date: 20230227
  Transmission Date: 20230418
  Serious: Yes (Hospitalization)
  Sender: FDA-Public Use
  Company Number: PT-GRUNENTHAL-2023-100523

PATIENT
  Age: 22 Year
  Sex: Female

DRUGS (5)
  1. SIMVASTATIN [Suspect]
     Active Substance: SIMVASTATIN
     Dosage: UNCERTAIN DOSE
  2. METFORMIN [Suspect]
     Active Substance: METFORMIN HYDROCHLORIDE
     Dosage: UNCERTAIN DOSE
  3. AMLODIPINE BESYLATE\PERINDOPRIL ERBUMINE [Suspect]
     Active Substance: AMLODIPINE BESYLATE\PERINDOPRIL ERBUMINE
     Dosage: UNCERTAIN DOSE
  4. FENOFIBRATE [Suspect]
     Active Substance: FENOFIBRATE
     Dosage: UNCERTAIN DOSE
  5. ESOMEPRAZOLE [Suspect]
     Active Substance: ESOMEPRAZOLE
     Dosage: UNCERTAIN DOSE

REACTIONS (1)
  - Intentional product use issue [Unknown]
